FAERS Safety Report 5296836-8 (Version None)
Quarter: 2007Q2

REPORT INFORMATION
  Report Type: 
  Country: None (occurrence: None)
  Receive Date: 20070413
  Receipt Date: 20070402
  Transmission Date: 20071010
  Serious: Yes (Other)
  Sender: FDA-Public Use
  Company Number: PHMT2007CA00972

PATIENT
  Age: 41 Year
  Sex: Female

DRUGS (2)
  1. ZELNORM [Suspect]
     Indication: CONSTIPATION
     Dosage: 6 MG, BID
     Route: 048
     Dates: start: 20020101, end: 20061223
  2. ZELNORM [Suspect]
     Dosage: 6 MG, BID
     Dates: start: 20070104, end: 20070331

REACTIONS (2)
  - MUSCLE SPASMS [None]
  - SUFFOCATION FEELING [None]
